FAERS Safety Report 6068707-0 (Version None)
Quarter: 2009Q1

REPORT INFORMATION
  Report Type: 
  Country: None (occurrence: None)
  Receive Date: 20090206
  Receipt Date: 20090202
  Transmission Date: 20090719
  Serious: Yes (Other)
  Sender: FDA-Public Use
  Company Number: B0556820A

PATIENT
  Age: 71 Year
  Sex: Male

DRUGS (9)
  1. REQUIP [Suspect]
     Indication: PARKINSON'S DISEASE
     Dosage: 7MG THREE TIMES PER DAY
     Route: 048
  2. REQUIP [Suspect]
     Dosage: 5MG THREE TIMES PER DAY
     Route: 048
  3. REQUIP [Suspect]
     Dosage: 2MG THREE TIMES PER DAY
     Route: 048
  4. TRAMADOL HCL [Suspect]
     Indication: PAIN
     Dosage: 50MG TWICE PER DAY
     Route: 065
     Dates: start: 20090101
  5. DICLOFENAC [Suspect]
     Indication: PAIN
     Route: 065
     Dates: end: 20090101
  6. CODEINE SUL TAB [Suspect]
     Indication: PAIN
     Route: 065
     Dates: end: 20090101
  7. MADOPAR [Suspect]
     Indication: PARKINSON'S DISEASE
     Dosage: 125MG FIVE TIMES PER DAY
     Route: 065
  8. MADOPAR [Suspect]
     Dosage: 250MG AT NIGHT
  9. MADOPAR [Suspect]
     Dosage: 62.5MG AS REQUIRED
     Route: 065

REACTIONS (4)
  - ASTHENIA [None]
  - DYSSTASIA [None]
  - HALLUCINATION [None]
  - LETHARGY [None]
